FAERS Safety Report 21978318 (Version 2)
Quarter: 2023Q1

REPORT INFORMATION
  Report Type: Report from Study
  Country: JP (occurrence: JP)
  Receive Date: 20230210
  Receipt Date: 20230318
  Transmission Date: 20230417
  Serious: Yes (Death)
  Sender: FDA-Public Use
  Company Number: JP-ABBVIE-20K-087-3268800-00

PATIENT
  Age: 78 Year
  Sex: Male

DRUGS (8)
  1. CARBIDOPA\LEVODOPA [Suspect]
     Active Substance: CARBIDOPA\LEVODOPA
     Indication: Parkinson^s disease
     Dosage: MD: 8 ML?CD: 3.4 ML/HR X 16 HRS?ED: 1.3 ML/UNIT X3
     Route: 050
     Dates: start: 20201211, end: 20230124
  2. CARBIDOPA\LEVODOPA [Suspect]
     Active Substance: CARBIDOPA\LEVODOPA
     Dosage: MD: 8 ML?CD: 3.4 ML/HR  X16 HRS?ED: 1 ML/UNIT X 2
     Route: 050
     Dates: start: 202001, end: 20200129
  3. CARBIDOPA\LEVODOPA [Suspect]
     Active Substance: CARBIDOPA\LEVODOPA
     Dosage: MD: 8 ML?CD: 3.4 ML/HRX 16 HRS?ED: 1.0 ML/UNITX3
     Route: 050
     Dates: start: 20200129, end: 20200225
  4. CARBIDOPA\LEVODOPA [Suspect]
     Active Substance: CARBIDOPA\LEVODOPA
     Dosage: MD: 8 ML?CD: 3.4 ML/HR X 16 HRS?ED: 1.0 ML/UNIT X 3
     Route: 050
     Dates: start: 20200225, end: 20200317
  5. CARBIDOPA\LEVODOPA [Suspect]
     Active Substance: CARBIDOPA\LEVODOPA
     Dosage: MD: 8 ML?CD: 3.4 ML/HR X 16 HRS?ED: 1.2 ML/UNIT X 3
     Route: 050
     Dates: start: 20200317, end: 20201211
  6. CHLORHEXIDINE GLUCONATE [Concomitant]
     Active Substance: CHLORHEXIDINE GLUCONATE
     Indication: Product used for unknown indication
  7. ROTIGOTINE [Concomitant]
     Active Substance: ROTIGOTINE
     Indication: Parkinson^s disease
     Route: 062
  8. ZOLPIDEM TARTRATE [Concomitant]
     Active Substance: ZOLPIDEM TARTRATE
     Indication: Product used for unknown indication
     Route: 048

REACTIONS (16)
  - Acute respiratory failure [Fatal]
  - Anaemia [Fatal]
  - Wrong technique in device usage process [Unknown]
  - Pulmonary embolism [Fatal]
  - Extra dose administered [Unknown]
  - Medical device site pain [Unknown]
  - Dermatitis contact [Unknown]
  - Mobility decreased [Unknown]
  - Product storage error [Unknown]
  - Product administration error [Unknown]
  - Stoma site discharge [Not Recovered/Not Resolved]
  - Hypokinesia [Unknown]
  - Drug ineffective [Unknown]
  - On and off phenomenon [Recovered/Resolved]
  - Malaise [Unknown]
  - On and off phenomenon [Not Recovered/Not Resolved]

NARRATIVE: CASE EVENT DATE: 20200101
